FAERS Safety Report 24858325 (Version 1)
Quarter: 2025Q1

REPORT INFORMATION
  Report Type: Report from Study
  Country: US (occurrence: US)
  Receive Date: 20250117
  Receipt Date: 20250117
  Transmission Date: 20250409
  Serious: Yes (Hospitalization, Other)
  Sender: INTRABIO
  Company Number: US-IBO-202500004

PATIENT
  Age: 10 Year
  Sex: Female
  Weight: 26 kg

DRUGS (2)
  1. AQNEURSA [Suspect]
     Active Substance: ACETYLLEUCINE, L-
     Indication: Product used for unknown indication
     Route: 065
     Dates: start: 20241218, end: 20241227
  2. Abrabetadex [Concomitant]
     Indication: Product used for unknown indication
     Route: 037

REACTIONS (1)
  - Pneumonia [Not Recovered/Not Resolved]

NARRATIVE: CASE EVENT DATE: 20241224
